FAERS Safety Report 7297914-4 (Version None)
Quarter: 2011Q1

REPORT INFORMATION
  Report Type: 
  Country: None (occurrence: None)
  Receive Date: 20110217
  Receipt Date: 20110210
  Transmission Date: 20110831
  Serious: Yes (Other)
  Sender: FDA-Public Use
  Company Number: US-JNJFOC-20110203803

PATIENT
  Sex: Female
  Weight: 72.58 kg

DRUGS (6)
  1. LIPITOR [Concomitant]
     Indication: BLOOD CHOLESTEROL INCREASED
     Route: 048
  2. RAZADYNE ER [Suspect]
     Indication: VASCULAR DEMENTIA
     Route: 048
  3. ASPIRIN [Concomitant]
     Indication: CARDIOVASCULAR DISORDER
     Route: 048
  4. CELEXA [Suspect]
     Indication: PRODUCT USED FOR UNKNOWN INDICATION
     Route: 048
  5. COZAAR [Concomitant]
     Indication: BLOOD PRESSURE
     Route: 048
  6. ACETAMINOPHEN [Concomitant]
     Indication: ARTHRALGIA
     Route: 048

REACTIONS (7)
  - CONVERSION DISORDER [None]
  - DYSPHAGIA [None]
  - SCREAMING [None]
  - TREATMENT NONCOMPLIANCE [None]
  - ECONOMIC PROBLEM [None]
  - THERAPY CESSATION [None]
  - ANGER [None]
